FAERS Safety Report 11878409 (Version 1)
Quarter: 2015Q4

REPORT INFORMATION
  Report Type: Spontaneous
  Country: US (occurrence: US)
  Receive Date: 20151230
  Receipt Date: 20151230
  Transmission Date: 20160305
  Serious: No
  Sender: FDA-Public Use
  Company Number: US-009507513-1512USA013899

PATIENT
  Sex: Female

DRUGS (1)
  1. NUVARING [Suspect]
     Active Substance: ETHINYL ESTRADIOL\ETONOGESTREL
     Dosage: NEW RING, 3 WEEKS IN 1 WEEK OUT
     Route: 067
     Dates: start: 20151220

REACTIONS (2)
  - Device expulsion [Unknown]
  - Menorrhagia [Unknown]

NARRATIVE: CASE EVENT DATE: 201512
